FAERS Safety Report 18713528 (Version 3)
Quarter: 2021Q1

REPORT INFORMATION
  Report Type: Report from Study
  Country: MX (occurrence: MX)
  Receive Date: 20210107
  Receipt Date: 20210223
  Transmission Date: 20210419
  Serious: Yes (Other)
  Sender: FDA-Public Use
  Company Number: NVSC2021MX002313

PATIENT
  Age: 71 Year
  Sex: Male
  Weight: 80 kg

DRUGS (3)
  1. LORATADINE. [Concomitant]
     Active Substance: LORATADINE
     Indication: HYPERSENSITIVITY
     Dosage: 1 DF (10 MG), QD (ONE AND A HALF YEAR AGO)
     Route: 048
  2. METFORMIN [Concomitant]
     Active Substance: METFORMIN HYDROCHLORIDE
     Indication: DIABETES MELLITUS
     Dosage: 0.5 DF, BID 10 MG, (MORNING AND NIGHT, 20 YEARS AGO)
     Route: 048
  3. EXFORGE [Suspect]
     Active Substance: AMLODIPINE BESYLATE\VALSARTAN
     Indication: HYPERTENSION
     Dosage: 1 DF, QD
     Route: 048
     Dates: start: 2011, end: 20201205

REACTIONS (9)
  - Blood pressure abnormal [Recovered/Resolved]
  - Drug ineffective [Recovered/Resolved]
  - Dizziness [Unknown]
  - Cerebral infarction [Recovered/Resolved with Sequelae]
  - Dementia Alzheimer^s type [Not Recovered/Not Resolved]
  - Speech disorder [Not Recovered/Not Resolved]
  - Vascular dementia [Not Recovered/Not Resolved]
  - Blood pressure increased [Recovered/Resolved]
  - Embolism [Recovered/Resolved with Sequelae]

NARRATIVE: CASE EVENT DATE: 2017
